FAERS Safety Report 6629114-2 (Version None)
Quarter: 2010Q1

REPORT INFORMATION
  Report Type: 
  Country: None (occurrence: None)
  Receive Date: 20100311
  Receipt Date: 20090818
  Transmission Date: 20100710
  Serious: No
  Sender: FDA-Public Use
  Company Number: US-BIOGENIDEC-2009BI025941

PATIENT
  Age: 60 Year
  Sex: Male

DRUGS (3)
  1. AVONEX [Suspect]
     Indication: MULTIPLE SCLEROSIS
     Route: 030
     Dates: start: 20010101, end: 20060101
  2. AVONEX [Suspect]
     Route: 030
     Dates: start: 20060101, end: 20060101
  3. AVONEX [Suspect]
     Route: 030
     Dates: start: 20060101

REACTIONS (1)
  - GAIT DISTURBANCE [None]
